FAERS Safety Report 24242922 (Version 2)
Quarter: 2024Q4

REPORT INFORMATION
  Report Type: Spontaneous
  Country: DE (occurrence: DE)
  Receive Date: 20240823
  Receipt Date: 20241008
  Transmission Date: 20250114
  Serious: Yes (Hospitalization, Other)
  Sender: RANBAXY
  Company Number: DE-BFARM-24004068

PATIENT
  Sex: Female

DRUGS (4)
  1. GANIRELIX [Suspect]
     Active Substance: GANIRELIX
     Indication: Assisted reproductive technology
     Dosage: 0.25 MG/5ML 7TH-14TH DAY OF CYCLE
     Route: 065
  2. TRIPTORELIN ACETATE [Suspect]
     Active Substance: TRIPTORELIN ACETATE
     Indication: Assisted reproductive technology
     Dosage: 0.1MG/ML 14TH DAY OF CYCLE
     Route: 065
  3. TRIPTORELIN ACETATE [Suspect]
     Active Substance: TRIPTORELIN ACETATE
     Indication: Assisted reproductive technology
  4. MENOTROPINS [Suspect]
     Active Substance: MENOTROPINS
     Indication: Assisted reproductive technology
     Dosage: 200 IU 3RD-8TH DAY OF CYCLE 250 IU 9TH-13TH DAY OF CYCLE
     Route: 065

REACTIONS (1)
  - Ovarian hyperstimulation syndrome [Unknown]
